FAERS Safety Report 4541066-8 (Version None)
Quarter: 2004Q4

REPORT INFORMATION
  Report Type: 
  Country: None (occurrence: None)
  Receive Date: 20041229
  Receipt Date: 20041123
  Transmission Date: 20050328
  Serious: Yes (Other)
  Sender: FDA-Public Use
  Company Number: US-JNJFOC-20041106493

PATIENT
  Sex: Female
  Weight: 86.64 kg

DRUGS (8)
  1. DURAGESIC [Suspect]
     Route: 062
     Dates: start: 20040901
  2. HYDROXYZINE [Concomitant]
     Indication: DEPRESSION
     Route: 049
  3. HYDROXYZINE [Concomitant]
     Indication: ANXIETY
     Route: 049
  4. PLETAL [Concomitant]
     Indication: ANTICOAGULANT THERAPY
     Route: 049
  5. PRAVACHOL [Concomitant]
     Route: 049
  6. PLAVIX [Concomitant]
     Indication: ANTICOAGULANT THERAPY
     Route: 049
  7. PROMETHAZINE [Concomitant]
     Indication: VOMITING
     Route: 049
  8. PROMETHAZINE [Concomitant]
     Indication: NAUSEA
     Route: 049

REACTIONS (2)
  - APPLICATION SITE ERYTHEMA [None]
  - DEEP VEIN THROMBOSIS [None]
